FAERS Safety Report 21820032 (Version 1)
Quarter: 2023Q1

REPORT INFORMATION
  Report Type: Spontaneous
  Country: DE (occurrence: DE)
  Receive Date: 20230104
  Receipt Date: 20230104
  Transmission Date: 20230417
  Serious: Yes (Other)
  Sender: FDA-Public Use
  Company Number: DE-RECORDATI-2022005500

PATIENT
  Age: 69 Year
  Sex: Female

DRUGS (7)
  1. RAMIPRIL [Suspect]
     Active Substance: RAMIPRIL
     Indication: Hypertension
  2. LERCANIDIPINE HYDROCHLORIDE [Suspect]
     Active Substance: LERCANIDIPINE HYDROCHLORIDE
     Indication: Hypertension
  3. TORSEMIDE [Suspect]
     Active Substance: TORSEMIDE
     Indication: Hypertension
  4. TORSEMIDE [Suspect]
     Active Substance: TORSEMIDE
  5. HYGROTON [Concomitant]
     Active Substance: CHLORTHALIDONE
     Indication: Secondary hypertension
  6. HYGROTON [Concomitant]
     Active Substance: CHLORTHALIDONE
     Indication: Oedema peripheral
  7. HYGROTON [Concomitant]
     Active Substance: CHLORTHALIDONE
     Indication: Hypervolaemia

REACTIONS (3)
  - Hypertensive crisis [Recovering/Resolving]
  - Contraindicated product administered [Recovering/Resolving]
  - Hypertension [Recovering/Resolving]
